FAERS Safety Report 8303860-7 (Version None)
Quarter: 2012Q2

REPORT INFORMATION
  Report Type: 
  Country: None (occurrence: None)
  Receive Date: 20120423
  Receipt Date: 20120416
  Transmission Date: 20120825
  Serious: Yes (Other)
  Sender: FDA-Public Use
  Company Number: PHHO2012DE005679

PATIENT
  Sex: Female
  Weight: 68 kg

DRUGS (2)
  1. NO TREATMENT RECEIVED [Suspect]
     Indication: BREAST CANCER
     Dosage: NO TREATMENT
  2. TAMOXIFEN CITRATE [Suspect]
     Indication: BREAST CANCER
     Dosage: 20 MG, DAILY
     Dates: start: 20101111

REACTIONS (3)
  - CONTRALATERAL BREAST CANCER [None]
  - METASTASES TO LYMPH NODES [None]
  - NEOPLASM MALIGNANT [None]
